FAERS Safety Report 24441136 (Version 1)
Quarter: 2024Q4

REPORT INFORMATION
  Report Type: Spontaneous
  Country: DE (occurrence: DE)
  Receive Date: 20241016
  Receipt Date: 20241016
  Transmission Date: 20250115
  Serious: Yes (Hospitalization)
  Sender: AMGEN
  Company Number: DE-002147023-NVSC2024DE199764

PATIENT
  Age: 20 Year
  Sex: Female

DRUGS (1)
  1. AIMOVIG [Suspect]
     Active Substance: ERENUMAB-AOOE
     Indication: Product used for unknown indication
     Dosage: 140 MG (EVERY 28 DAYS)
     Route: 065

REACTIONS (4)
  - Headache [Unknown]
  - Alopecia [Not Recovered/Not Resolved]
  - Migraine [Unknown]
  - Compulsions [Unknown]
